FAERS Safety Report 8250552-9 (Version None)
Quarter: 2012Q2

REPORT INFORMATION
  Report Type: 
  Country: None (occurrence: None)
  Receive Date: 20120402
  Receipt Date: 20120222
  Transmission Date: 20120825
  Serious: Yes (Hospitalization, Other)
  Sender: FDA-Public Use
  Company Number: US-PFIZER INC-2012080418

PATIENT
  Age: 42 Year
  Sex: Male

DRUGS (17)
  1. HALOPERIDOL [Suspect]
     Dosage: 30 MG, DAILY ON DAY 9
  2. ZIPRASIDONE HCL [Suspect]
     Indication: SCHIZOPHRENIA
     Dosage: 20 MG, AS NEEDED ON DAY 1
  3. TRAZODONE HCL [Suspect]
     Dosage: 100 MG AS NEEDED ON DAY3, 100 MG
  4. LORAZEPAM [Suspect]
     Indication: SCHIZOPHRENIA
     Dosage: 9 MG, AS NEEDED ON DAY 1
  5. LORAZEPAM [Suspect]
     Dosage: 2 MG, AS NEEDED FROM DAY 4 TO DAY 8
  6. APO-BENZTROPINE [Suspect]
     Indication: SCHIZOPHRENIA
     Dosage: 1 MG, DAILY FROM DAY 4 TO DAY 9
  7. HALOPERIDOL [Suspect]
     Dosage: 30 MG, DAILY + 5MG AS REQ FROM DAY4 TO 8
  8. LORAZEPAM [Suspect]
     Dosage: 10 MG, AS NEEDED ON DAY 2
  9. DIPHENHYDRAMINE HCL [Suspect]
     Indication: SCHIZOPHRENIA
     Dosage: 150 MG, AS NEEDED ON DAY 1
  10. HALOPERIDOL [Suspect]
     Indication: SCHIZOPHRENIA
     Dosage: 20 MG, AS NEEDED ON DAY 1
  11. HALOPERIDOL [Suspect]
     Dosage: 15 MG, AS NEEDED ON DAY2
  12. LORAZEPAM [Suspect]
     Dosage: 6 MG, AS NEEDED ON DAY 3
  13. OLANZAPINE [Suspect]
     Indication: SCHIZOPHRENIA
     Dosage: 20 MG, AS NEEDED ON DAY 2
  14. HYDROXYZINE PAMOATE [Suspect]
     Indication: SCHIZOPHRENIA
     Dosage: 100 MG, AS NEEDED
  15. TRAZODONE HCL [Suspect]
     Indication: SCHIZOPHRENIA
     Dosage: 50 MG, AS NEEDED ON DAY2
  16. HALOPERIDOL [Suspect]
     Dosage: 20 MG, AS NEEDED ON DAY 3
  17. TRAZODONE HCL [Suspect]
     Dosage: DAILY DOSE:100 MG/DAY FROM DAY 4 TO 9

REACTIONS (1)
  - NEUROLEPTIC MALIGNANT SYNDROME [None]
